FAERS Safety Report 10357628 (Version 10)
Quarter: 2015Q3

REPORT INFORMATION
  Report Type: Report from Study
  Country: US (occurrence: US)
  Receive Date: 20140801
  Receipt Date: 20150810
  Transmission Date: 20151125
  Serious: Yes (Hospitalization, Other)
  Sender: FDA-Public Use
  Company Number: US-SA-2014SA070606

PATIENT
  Age: 51 Year
  Sex: Female

DRUGS (3)
  1. AUBAGIO [Suspect]
     Active Substance: TERIFLUNOMIDE
     Indication: MULTIPLE SCLEROSIS
     Route: 048
     Dates: start: 20140604
  2. AUBAGIO [Suspect]
     Active Substance: TERIFLUNOMIDE
     Indication: MULTIPLE SCLEROSIS
     Route: 048
     Dates: start: 20140508
  3. AUBAGIO [Suspect]
     Active Substance: TERIFLUNOMIDE
     Indication: MULTIPLE SCLEROSIS
     Route: 048
     Dates: start: 20140515

REACTIONS (30)
  - Stress [Unknown]
  - Fall [Unknown]
  - Dysphonia [Unknown]
  - Drug dose omission [Unknown]
  - Memory impairment [Unknown]
  - Nausea [Recovering/Resolving]
  - Paraesthesia [Unknown]
  - Urinary retention [Unknown]
  - Dehydration [Unknown]
  - Gait disturbance [Recovering/Resolving]
  - Hypertension [Unknown]
  - Vision blurred [Unknown]
  - Influenza [Recovered/Resolved]
  - Hypoaesthesia [Unknown]
  - Sleep disorder [Unknown]
  - Pain [Unknown]
  - Ocular discomfort [Unknown]
  - Tooth loss [Unknown]
  - Asthenia [Unknown]
  - Multiple sclerosis relapse [Unknown]
  - Unevaluable event [Unknown]
  - Speech disorder [Unknown]
  - Pain [Recovered/Resolved]
  - Syncope [Unknown]
  - Balance disorder [Unknown]
  - Band sensation [Unknown]
  - Limb discomfort [Unknown]
  - Vomiting [Unknown]
  - Malaise [Unknown]
  - Alopecia [Recovered/Resolved]

NARRATIVE: CASE EVENT DATE: 2014
